FAERS Safety Report 11492653 (Version 1)
Quarter: 2015Q3

REPORT INFORMATION
  Report Type: Spontaneous
  Country: US (occurrence: None)
  Receive Date: 20150910
  Receipt Date: 20150910
  Transmission Date: 20151125
  Serious: Yes (Hospitalization)
  Sender: FDA-Public Use
  Company Number: None

PATIENT
  Age: 68 Year
  Sex: Male
  Weight: 79.38 kg

DRUGS (12)
  1. PROPRANOLOL [Concomitant]
     Active Substance: PROPRANOLOL\PROPRANOLOL HYDROCHLORIDE
  2. LEVEMIR [Concomitant]
     Active Substance: INSULIN DETEMIR
  3. GLIPIZIDE. [Concomitant]
     Active Substance: GLIPIZIDE
  4. LACTULOSE. [Concomitant]
     Active Substance: LACTULOSE
  5. LEVOTHYROXINE. [Concomitant]
     Active Substance: LEVOTHYROXINE
  6. ONGLYZA [Concomitant]
     Active Substance: SAXAGLIPTIN HYDROCHLORIDE
  7. CELXA [Concomitant]
  8. PROTONIX [Concomitant]
     Active Substance: PANTOPRAZOLE SODIUM
  9. XANAX [Concomitant]
     Active Substance: ALPRAZOLAM
  10. NEXAVAR [Concomitant]
     Active Substance: SORAFENIB
  11. HARVONI [Suspect]
     Active Substance: LEDIPASVIR\SOFOSBUVIR
     Indication: HEPATITIS C
     Dosage: 400-90
     Route: 048
     Dates: start: 20150403, end: 20150624
  12. XIFAXAN [Concomitant]
     Active Substance: RIFAXIMIN

REACTIONS (1)
  - Metastases to spine [None]

NARRATIVE: CASE EVENT DATE: 20150511
